FAERS Safety Report 9296797 (Version 1)
Quarter: 2013Q2

REPORT INFORMATION
  Report Type: Report from Study
  Country: CA (occurrence: CA)
  Receive Date: 20130517
  Receipt Date: 20130517
  Transmission Date: 20140414
  Serious: Yes (Hospitalization)
  Sender: FDA-Public Use
  Company Number: PHHY2013CA048775

PATIENT
  Sex: Female

DRUGS (2)
  1. SANDOSTATIN LAR [Suspect]
     Indication: NEUROENDOCRINE TUMOUR
     Dosage: 30 MG, PER MONTH
     Route: 042
     Dates: start: 2008
  2. LOPERAMIDE [Concomitant]
     Dosage: 2 MG, UNK

REACTIONS (2)
  - Injection site bruising [Unknown]
  - Diarrhoea [Unknown]
